FAERS Safety Report 8160269-7 (Version None)
Quarter: 2012Q1

REPORT INFORMATION
  Report Type: 
  Country: None (occurrence: None)
  Receive Date: 20120223
  Receipt Date: 20120223
  Transmission Date: 20120608
  Serious: No
  Sender: FDA-Public Use
  Company Number: None

PATIENT
  Age: 76 Year
  Sex: Male

DRUGS (2)
  1. VELCADE [Suspect]
     Indication: MULTIPLE MYELOMA
  2. DECADRON [Concomitant]
     Indication: MULTIPLE MYELOMA

REACTIONS (3)
  - POLLAKIURIA [None]
  - DIABETES MELLITUS [None]
  - NEUROPATHY PERIPHERAL [None]
